FAERS Safety Report 6781897-7 (Version None)
Quarter: 2010Q2

REPORT INFORMATION
  Report Type: 
  Country: None (occurrence: None)
  Receive Date: 20100621
  Receipt Date: 20100611
  Transmission Date: 20101027
  Serious: Yes (Other)
  Sender: FDA-Public Use
  Company Number: GXKR2010NL06480

PATIENT
  Age: 47 Year
  Sex: Male

DRUGS (2)
  1. AZATHIOPRINE SODIUM [Suspect]
     Indication: IMMUNOSUPPRESSION
     Dosage: 175 MG, QD
     Route: 065
  2. PREDNISOLONE [Suspect]
     Indication: IMMUNOSUPPRESSION
     Dosage: 10 MG, QD
     Route: 065

REACTIONS (6)
  - BONE LESION EXCISION [None]
  - HYPERKERATOSIS [None]
  - IMPAIRED HEALING [None]
  - PAIN IN EXTREMITY [None]
  - SKIN LESION EXCISION [None]
  - SQUAMOUS CELL CARCINOMA [None]
